FAERS Safety Report 4762189-4 (Version None)
Quarter: 2005Q3

REPORT INFORMATION
  Report Type: 
  Country: None (occurrence: None)
  Receive Date: 20050907
  Receipt Date: 20050719
  Transmission Date: 20060218
  Serious: Yes (Congenital Anomaly, Other)
  Sender: FDA-Public Use
  Company Number: US-ABBOTT-05P-163-0306246-00

PATIENT
  Sex: Male

DRUGS (7)
  1. NORVIR [Suspect]
     Indication: DRUG EXPOSURE DURING PREGNANCY
  2. KALETRA [Suspect]
     Indication: DRUG EXPOSURE DURING PREGNANCY
  3. REYATAZ [Suspect]
     Indication: DRUG EXPOSURE DURING PREGNANCY
  4. VIREAD [Suspect]
     Indication: DRUG EXPOSURE DURING PREGNANCY
  5. LAMIVUDINE [Suspect]
     Indication: DRUG EXPOSURE DURING PREGNANCY
  6. LAMIVUDINE + ZIDOVUDINE [Suspect]
     Indication: DRUG EXPOSURE DURING PREGNANCY
  7. ZIDOVUDINE [Suspect]
     Indication: DRUG EXPOSURE DURING PREGNANCY

REACTIONS (3)
  - DRUG EXPOSURE DURING PREGNANCY [None]
  - PELVI-URETERIC OBSTRUCTION [None]
  - PYELECTASIA [None]
